FAERS Safety Report 6715302-3 (Version None)
Quarter: 2010Q2

REPORT INFORMATION
  Report Type: 
  Country: None (occurrence: None)
  Receive Date: 20100507
  Receipt Date: 20100426
  Transmission Date: 20101027
  Serious: Yes (Other)
  Sender: FDA-Public Use
  Company Number: US-PFIZER INC-2010031898

PATIENT
  Sex: Female
  Weight: 54 kg

DRUGS (3)
  1. AROMASIN [Suspect]
     Indication: BREAST CANCER METASTATIC
     Dosage: 25 MG, DAILY
     Route: 048
     Dates: start: 20090901
  2. ZOMETA [Concomitant]
     Dosage: UNK
  3. KYTRIL [Concomitant]
     Dosage: UNK

REACTIONS (1)
  - ASCITES [None]
